FAERS Safety Report 11124370 (Version 5)
Quarter: 2015Q3

REPORT INFORMATION
  Report Type: Spontaneous
  Country: US (occurrence: None)
  Receive Date: 20150518
  Receipt Date: 20150916
  Transmission Date: 20151125
  Serious: Yes (Other)
  Sender: FDA-Public Use
  Company Number: ADR-2015-00948

PATIENT
  Age: 5 Year
  Sex: Male

DRUGS (1)
  1. LIORESAL [Suspect]
     Active Substance: BACLOFEN
     Indication: MUSCLE SPASTICITY
     Dosage: 150.2 MCG/DAY

REACTIONS (3)
  - Catheter site mass [None]
  - Pseudomeningocele [None]
  - Cerebrospinal fluid leakage [None]
